FAERS Safety Report 26015682 (Version 1)
Quarter: 2025Q4

REPORT INFORMATION
  Report Type: Report from Study
  Country: US (occurrence: US)
  Receive Date: 20251109
  Receipt Date: 20251109
  Transmission Date: 20260117
  Serious: Yes (Hospitalization)
  Sender: ALEXION PHARMACEUTICALS
  Company Number: US-AstraZeneca-CH-00985644A

PATIENT
  Sex: Male

DRUGS (2)
  1. ACALABRUTINIB [Suspect]
     Active Substance: ACALABRUTINIB
     Indication: Chronic lymphocytic leukaemia
     Dosage: 100 MILLIGRAM, BID
     Dates: start: 20250930
  2. LISINOPRIL [Concomitant]
     Active Substance: LISINOPRIL
     Route: 065

REACTIONS (1)
  - Blood potassium increased [Unknown]
